FAERS Safety Report 21509655 (Version 2)
Quarter: 2024Q1

REPORT INFORMATION
  Report Type: Report from Study
  Country: US (occurrence: US)
  Receive Date: 20221026
  Receipt Date: 20240304
  Transmission Date: 20240410
  Serious: No
  Sender: FDA-Public Use
  Company Number: US-ABBVIE-4172396

PATIENT
  Sex: Male

DRUGS (2)
  1. IMBRUVICA [Suspect]
     Active Substance: IBRUTINIB
     Indication: Chronic lymphocytic leukaemia
     Dosage: 420 MG
     Route: 048
     Dates: start: 202002
  2. IMBRUVICA [Suspect]
     Active Substance: IBRUTINIB
     Indication: Chronic lymphocytic leukaemia
     Dosage: STOP DATE FEB 2020
     Route: 048
     Dates: start: 20200223

REACTIONS (5)
  - Alopecia [Unknown]
  - Alopecia [Recovered/Resolved]
  - Ageusia [Unknown]
  - Onychoclasis [Unknown]
  - Anosmia [Unknown]

NARRATIVE: CASE EVENT DATE: 20220101
